FAERS Safety Report 9288374 (Version 2)
Quarter: 2013Q2

REPORT INFORMATION
  Report Type: Report from Study
  Country: US (occurrence: US)
  Receive Date: 20130514
  Receipt Date: 20130520
  Transmission Date: 20140414
  Serious: Yes (Hospitalization)
  Sender: FDA-Public Use
  Company Number: US-ACTELION-A-NJ2013-83054

PATIENT
  Age: 14 Month
  Sex: Female

DRUGS (2)
  1. TRACLEER [Suspect]
     Indication: PULMONARY ARTERIAL HYPERTENSION
     Dosage: 19 MG, BID
     Route: 048
     Dates: start: 20130413
  2. SILDENAFIL [Concomitant]

REACTIONS (1)
  - Dysentery [Recovering/Resolving]
